FAERS Safety Report 17166205 (Version 1)
Quarter: 2019Q4

REPORT INFORMATION
  Report Type: Spontaneous
  Country: CH (occurrence: CH)
  Receive Date: 20191217
  Receipt Date: 20191217
  Transmission Date: 20200122
  Serious: Yes (Other)
  Sender: FDA-Public Use
  Company Number: CH-009507513-1901CHE009695

PATIENT
  Sex: Female
  Weight: 58 kg

DRUGS (2)
  1. IMPLANON NXT [Suspect]
     Active Substance: ETONOGESTREL
     Indication: HORMONAL CONTRACEPTION
     Dosage: 1 IMPLANT, FOR THREE YEARS (5TH IMPLANT)
     Route: 059
     Dates: start: 2016, end: 20190118
  2. IMPLANON NXT [Interacting]
     Active Substance: ETONOGESTREL
     Dosage: 4 INSERTIONS WITH IMPLANON, EACH IMPLANT FOR 3 YEARS
     Route: 059

REACTIONS (2)
  - Pregnancy with implant contraceptive [Recovered/Resolved]
  - Unintended pregnancy [Recovered/Resolved]

NARRATIVE: CASE EVENT DATE: 20181225
